FAERS Safety Report 4293124-3 (Version None)
Quarter: 2004Q1

REPORT INFORMATION
  Report Type: 
  Country: None (occurrence: None)
  Receive Date: 20040212
  Receipt Date: 20030506
  Transmission Date: 20041129
  Serious: No
  Sender: FDA-Public Use
  Company Number: US-GLAXOSMITHKLINE-A0407525A

PATIENT
  Age: 48 Year
  Sex: Female

DRUGS (4)
  1. PAXIL [Suspect]
     Indication: DEPRESSION
     Route: 048
  2. WELLBUTRIN SR [Concomitant]
  3. DIURETIC [Concomitant]
     Indication: HYPERTENSION
  4. LOESTRIN 1.5/30 [Concomitant]

REACTIONS (2)
  - SOMNOLENCE [None]
  - TINNITUS [None]
